FAERS Safety Report 11889952 (Version 1)
Quarter: 2016Q1

REPORT INFORMATION
  Report Type: Spontaneous
  Country: US (occurrence: US)
  Receive Date: 20160105
  Receipt Date: 20160105
  Transmission Date: 20160526
  Serious: No
  Sender: FDA-Public Use
  Company Number: US-PERRIGO-15US007652

PATIENT
  Age: 67 Year
  Sex: Female
  Weight: 57.6 kg

DRUGS (3)
  1. GUAIFENESIN 600 MG 498 [Suspect]
     Active Substance: GUAIFENESIN
     Indication: PRODUCTIVE COUGH
     Dosage: 600 MG, SINGLE
     Route: 048
     Dates: start: 20150722, end: 20150722
  2. VITAMINS NOS [Concomitant]
     Active Substance: VITAMINS
     Indication: ROUTINE HEALTH MAINTENANCE
     Dosage: UNK
     Route: 065
  3. ST JOHNS WORT [Suspect]
     Active Substance: ST. JOHN^S WORT
     Indication: DEPRESSION
     Dosage: ONE TABLET, SINGLE
     Route: 048
     Dates: start: 20150722, end: 20150722

REACTIONS (3)
  - Chest discomfort [Recovered/Resolved]
  - Blood pressure increased [Unknown]
  - Drug interaction [Recovered/Resolved]

NARRATIVE: CASE EVENT DATE: 20150722
